FAERS Safety Report 9057326 (Version 1)
Quarter: 2013Q1

REPORT INFORMATION
  Report Type: Report from Study
  Country: KR (occurrence: KR)
  Receive Date: 20130201
  Receipt Date: 20130201
  Transmission Date: 20140127
  Serious: Yes (Hospitalization)
  Sender: FDA-Public Use
  Company Number: KR-ABBOTT-12P-090-0923509-00

PATIENT
  Age: 54 Year
  Sex: Male
  Weight: 79 kg

DRUGS (8)
  1. KALETRA TABLETS [Suspect]
     Indication: HIV INFECTION
     Route: 048
     Dates: start: 20101220
  2. ZIDOVUDINE [Suspect]
     Indication: HIV INFECTION
     Dates: start: 20101220, end: 20110314
  3. ABACAVIR [Concomitant]
     Indication: ANTIRETROVIRAL THERAPY
     Dosage: 600 MG DAILY
     Route: 048
     Dates: start: 20110315
  4. 3TC [Concomitant]
     Indication: ANTIRETROVIRAL THERAPY
     Dosage: 300 MG DAILY
     Route: 048
     Dates: start: 20110315
  5. HEPSERA [Concomitant]
     Indication: CHRONIC HEPATITIS B
     Dosage: 10 MG DAILY
     Route: 048
     Dates: start: 20101220
  6. MACPERAN [Concomitant]
     Indication: PROPHYLAXIS OF NAUSEA AND VOMITING
     Dosage: 15 MG DAILY
     Route: 048
     Dates: start: 20101220, end: 20110228
  7. SMECTA [Concomitant]
     Indication: PROPHYLAXIS AGAINST DIARRHOEA
     Dosage: SMECTA SUSP 3G/20ML
     Route: 048
     Dates: start: 20101220, end: 20101228
  8. 3TC/AZT [Concomitant]
     Indication: ANTIRETROVIRAL THERAPY
     Route: 048
     Dates: start: 20101220, end: 20110314

REACTIONS (6)
  - Anaemia [Recovered/Resolved]
  - Neutropenia [Unknown]
  - Oral candidiasis [Recovered/Resolved]
  - Fatigue [Recovered/Resolved]
  - Rash [Recovered/Resolved]
  - Dyspepsia [Recovered/Resolved]
